FAERS Safety Report 6858014-8 (Version None)
Quarter: 2010Q3

REPORT INFORMATION
  Report Type: 
  Country: None (occurrence: None)
  Receive Date: 20100719
  Receipt Date: 20100719
  Transmission Date: 20110219
  Serious: Yes (Other)
  Sender: FDA-Public Use
  Company Number: None

PATIENT
  Age: 9 Month
  Sex: Male
  Weight: 9.0719 kg

DRUGS (1)
  1. TRAMADOL HCL [Suspect]
     Indication: PAIN
     Dosage: 50 MG Q4-6H ORAL
     Route: 048
     Dates: start: 20100702, end: 20100712

REACTIONS (6)
  - AGITATION [None]
  - DRUG EXPOSURE VIA BREAST MILK [None]
  - EYE MOVEMENT DISORDER [None]
  - SOMNAMBULISM [None]
  - TREMOR [None]
  - UNRESPONSIVE TO STIMULI [None]
